FAERS Safety Report 14418936 (Version 2)
Quarter: 2018Q1

REPORT INFORMATION
  Report Type: Report from Study
  Country: US (occurrence: US)
  Receive Date: 20180122
  Receipt Date: 20180307
  Transmission Date: 20180509
  Serious: No
  Sender: FDA-Public Use
  Company Number: PHEH2018US002632

PATIENT
  Sex: Male

DRUGS (1)
  1. ILARIS [Suspect]
     Active Substance: CANAKINUMAB
     Indication: STILL^S DISEASE
     Dosage: 300 MG, QMO
     Route: 058

REACTIONS (5)
  - Malaise [Unknown]
  - Heart rate increased [Unknown]
  - Balance disorder [Unknown]
  - Nasopharyngitis [Unknown]
  - Serum ferritin decreased [Unknown]
